FAERS Safety Report 6462927-9 (Version None)
Quarter: 2009Q4

REPORT INFORMATION
  Report Type: 
  Country: None (occurrence: None)
  Receive Date: 20091130
  Receipt Date: 20091120
  Transmission Date: 20100525
  Serious: Yes (Other)
  Sender: FDA-Public Use
  Company Number: CA-ABBOTT-09P-028-0609880-00

PATIENT
  Sex: Female
  Weight: 61.5 kg

DRUGS (7)
  1. KALETRA [Suspect]
     Indication: HIV INFECTION
     Dosage: 200/50MG
  2. 3TC [Concomitant]
     Indication: DRUG USE FOR UNKNOWN INDICATION
  3. VIREAD [Concomitant]
     Indication: DRUG USE FOR UNKNOWN INDICATION
  4. ^MEPRONO^ [Concomitant]
     Indication: DRUG USE FOR UNKNOWN INDICATION
  5. LIVOSTIN [Concomitant]
     Indication: DRUG USE FOR UNKNOWN INDICATION
  6. ACYCLOVIR [Concomitant]
     Indication: DRUG USE FOR UNKNOWN INDICATION
  7. MULTI-VITAMIN [Concomitant]
     Indication: DRUG USE FOR UNKNOWN INDICATION

REACTIONS (5)
  - CHOLELITHIASIS [None]
  - HYPOPHAGIA [None]
  - PAIN [None]
  - VOMITING [None]
  - WEIGHT DECREASED [None]
